FAERS Safety Report 7893382-X (Version None)
Quarter: 2011Q4

REPORT INFORMATION
  Report Type: 
  Country: None (occurrence: None)
  Receive Date: 20111104
  Receipt Date: 20111025
  Transmission Date: 20120403
  Serious: Yes (Other)
  Sender: FDA-Public Use
  Company Number: JP-ROCHE-769961

PATIENT
  Sex: Male
  Weight: 105 kg

DRUGS (3)
  1. AVASTIN [Suspect]
     Indication: COLON CANCER METASTATIC
     Dosage: DOSAGE IS UNCERTAIN
     Route: 041
     Dates: start: 20101006, end: 20101117
  2. OXALIPLATIN [Concomitant]
     Dosage: DISAGE UNCERTAIN
     Route: 041
     Dates: start: 20100609, end: 20110119
  3. XELODA [Suspect]
     Indication: COLON CANCER METASTATIC
     Dosage: DOSAGE IS UNCERTAIN
     Route: 048
     Dates: start: 20100609, end: 20110119

REACTIONS (1)
  - NEPHROTIC SYNDROME [None]
